FAERS Safety Report 13166692 (Version 1)
Quarter: 2017Q1

REPORT INFORMATION
  Report Type: Spontaneous
  Country: US (occurrence: US)
  Receive Date: 20170127
  Receipt Date: 20170127
  Transmission Date: 20170428
  Serious: No
  Sender: FDA-Public Use
  Company Number: None

PATIENT
  Age: 26 Year
  Sex: Female

DRUGS (1)
  1. COPAXONE [Suspect]
     Active Substance: GLATIRAMER ACETATE
     Indication: MULTIPLE SCLEROSIS
     Dosage: 40MG/ML 3 TIMES WEEK SUBCUTANEOUSLY
     Route: 058
     Dates: start: 20161208, end: 20161216

REACTIONS (1)
  - Urticaria [None]

NARRATIVE: CASE EVENT DATE: 20161216
